FAERS Safety Report 23634819 (Version 1)
Quarter: 2024Q1

REPORT INFORMATION
  Report Type: Spontaneous
  Country: US (occurrence: US)
  Receive Date: 20240315
  Receipt Date: 20240315
  Transmission Date: 20240410
  Serious: No
  Sender: FDA-Public Use
  Company Number: US-SANOFI-01976649

PATIENT
  Age: 71 Year
  Sex: Male

DRUGS (1)
  1. LANTUS SOLOSTAR [Suspect]
     Active Substance: INSULIN GLARGINE
     Indication: Type 2 diabetes mellitus
     Dosage: 25 UNITS IN THE MORNING AND 20 UNITS IN THE EVENIN
     Route: 065
     Dates: start: 202401

REACTIONS (2)
  - Injection site pruritus [Unknown]
  - Off label use [Unknown]

NARRATIVE: CASE EVENT DATE: 20240101
